FAERS Safety Report 7183102-9 (Version None)
Quarter: 2010Q4

REPORT INFORMATION
  Report Type: 
  Country: None (occurrence: None)
  Receive Date: 20101222
  Receipt Date: 20101217
  Transmission Date: 20110411
  Serious: Yes (Hospitalization)
  Sender: FDA-Public Use
  Company Number: US-JNJFOC-20101206741

PATIENT
  Age: 64 Year
  Sex: Female

DRUGS (2)
  1. NUCYNTA [Suspect]
     Indication: PROCEDURAL PAIN
     Route: 048
  2. ALEVE [Concomitant]

REACTIONS (2)
  - NAUSEA [None]
  - TRANSIENT ISCHAEMIC ATTACK [None]
